FAERS Safety Report 24284837 (Version 1)
Quarter: 2024Q3

REPORT INFORMATION
  Report Type: Spontaneous
  Country: US (occurrence: None)
  Receive Date: 20240904
  Receipt Date: 20240904
  Transmission Date: 20241017
  Serious: Yes (Other)
  Sender: Public
  Company Number: None

PATIENT
  Age: 56 Year
  Sex: Female
  Weight: 56.25 kg

DRUGS (1)
  1. ATOVAQUONE\PROGUANIL [Suspect]
     Active Substance: ATOVAQUONE\PROGUANIL
     Indication: Malaria prophylaxis
     Dosage: 25--100 MG MG. ONCE DAILY ORAL MEDICATION ??
     Route: 048
     Dates: start: 20240701, end: 20240709

REACTIONS (5)
  - Panic attack [None]
  - Nightmare [None]
  - Migraine with aura [None]
  - Heart rate increased [None]
  - Chest pain [None]

NARRATIVE: CASE EVENT DATE: 20240708
